FAERS Safety Report 23714865 (Version 1)
Quarter: 2024Q2

REPORT INFORMATION
  Report Type: Spontaneous
  Country: US (occurrence: US)
  Receive Date: 20240406
  Receipt Date: 20240406
  Transmission Date: 20240722
  Serious: No
  Sender: FDA-Public Use
  Company Number: US-TEVA-VS-3173754

PATIENT
  Sex: Female

DRUGS (1)
  1. BUPRENORPHINE [Suspect]
     Active Substance: BUPRENORPHINE
     Indication: Back pain
     Route: 065

REACTIONS (2)
  - Product quality issue [Unknown]
  - Product dose omission issue [Unknown]
